FAERS Safety Report 5484926-6 (Version None)
Quarter: 2007Q4

REPORT INFORMATION
  Report Type: 
  Country: None (occurrence: None)
  Receive Date: 20071011
  Receipt Date: 20070927
  Transmission Date: 20080405
  Serious: Yes (Life-Threatening)
  Sender: FDA-Public Use
  Company Number: 071004-0001056

PATIENT

DRUGS (1)
  1. NEMBUTAL [Suspect]
     Indication: SEDATION

REACTIONS (1)
  - CARDIAC ARREST [None]
